FAERS Safety Report 5905214-7 (Version None)
Quarter: 2008Q4

REPORT INFORMATION
  Report Type: 
  Country: None (occurrence: None)
  Receive Date: 20081001
  Receipt Date: 20080922
  Transmission Date: 20090506
  Serious: Yes (Disabling)
  Sender: FDA-Public Use
  Company Number: NO-PFIZER INC-2008046163

PATIENT
  Sex: Male

DRUGS (2)
  1. SALAZOPYRIN EN [Suspect]
     Indication: PSORIATIC ARTHROPATHY
     Dosage: TEXT:2 + 0+ 2-FREQ:2
     Route: 048
     Dates: start: 20060905, end: 20070120
  2. PINEX FORTE [Concomitant]
     Indication: ARTHRALGIA
     Route: 048
     Dates: start: 20050101

REACTIONS (12)
  - ARTHRALGIA [None]
  - CHILLS [None]
  - DEMYELINATION [None]
  - HEADACHE [None]
  - HYPOAESTHESIA [None]
  - HYPOAESTHESIA FACIAL [None]
  - NAUSEA [None]
  - PARAESTHESIA [None]
  - PRURITUS [None]
  - RASH [None]
  - VOMITING [None]
  - WEIGHT DECREASED [None]
